FAERS Safety Report 14204361 (Version 1)
Quarter: 2017Q4

REPORT INFORMATION
  Report Type: Spontaneous
  Country: US (occurrence: US)
  Receive Date: 20171117
  Receipt Date: 20171117
  Transmission Date: 20180321
  Serious: Yes (Other)
  Sender: FDA-Public Use
  Company Number: None

PATIENT
  Age: 64 Year
  Sex: Male
  Weight: 75.6 kg

DRUGS (7)
  1. FLOMAX [Concomitant]
     Active Substance: TAMSULOSIN HYDROCHLORIDE
  2. ZYTIGA [Suspect]
     Active Substance: ABIRATERONE ACETATE
     Route: 048
     Dates: start: 20170601
  3. ASPIRIN LOW DOSE [Concomitant]
     Active Substance: ASPIRIN
  4. METFORMIN [Concomitant]
     Active Substance: METFORMIN HYDROCHLORIDE
  5. LISINOPRIL. [Concomitant]
     Active Substance: LISINOPRIL
  6. GLYBURIDE. [Concomitant]
     Active Substance: GLYBURIDE
  7. |SIMVAST ATIN [Concomitant]

REACTIONS (1)
  - Disease progression [None]
